FAERS Safety Report 10312156 (Version 3)
Quarter: 2014Q4

REPORT INFORMATION
  Report Type: Report from Study
  Country: US (occurrence: US)
  Receive Date: 20140718
  Receipt Date: 20141007
  Transmission Date: 20150528
  Serious: Yes (Other)
  Sender: FDA-Public Use
  Company Number: US-GILEAD-2014-0108530

PATIENT
  Age: 53 Year
  Sex: Female
  Weight: 45.35 kg

DRUGS (14)
  1. SOFOSBUVIR [Suspect]
     Active Substance: SOFOSBUVIR
     Indication: HEPATIC CIRRHOSIS
  2. ALBUTEROL                          /00139501/ [Concomitant]
     Active Substance: ALBUTEROL
     Indication: ASTHMA
     Dosage: 2.5 MG, 1 IN 1 AS NECESSARY
  3. OLYSIO [Suspect]
     Active Substance: SIMEPREVIR
     Indication: HEPATITIS C
     Dosage: 150 MG, QD
     Route: 048
     Dates: start: 20140509, end: 20140702
  4. SPIRONOLACTONE. [Concomitant]
     Active Substance: SPIRONOLACTONE
     Indication: OEDEMA
  5. PROVENTIL                          /00139501/ [Concomitant]
     Indication: ASTHMA
     Dosage: 105 UG
  6. OLYSIO [Suspect]
     Active Substance: SIMEPREVIR
     Indication: HEPATIC CIRRHOSIS
  7. LACTULOSE. [Concomitant]
     Active Substance: LACTULOSE
     Indication: HEPATIC ENCEPHALOPATHY
     Dosage: 30 ML, 3 IN 1 DAY
  8. RIFAXIMIN [Concomitant]
     Active Substance: RIFAXIMIN
     Indication: HEPATIC ENCEPHALOPATHY
     Dosage: 550 MG, 2 IN 1 DAY
  9. SOFOSBUVIR [Suspect]
     Active Substance: SOFOSBUVIR
     Indication: HEPATITIS C
     Dosage: 400 MG, QD
     Route: 048
     Dates: start: 20140509, end: 20140702
  10. SPIRONOLACTONE. [Concomitant]
     Active Substance: SPIRONOLACTONE
     Indication: ASCITES
     Dosage: 50 MG, QD
     Route: 048
     Dates: start: 2011
  11. POTASSIUM [Concomitant]
     Active Substance: POTASSIUM
     Indication: HYPOKALAEMIA
     Dosage: 20 MEQ, IN 1 DAY
     Dates: start: 20140611
  12. LASIX [Concomitant]
     Active Substance: FUROSEMIDE
     Indication: ASCITES
     Dosage: 20 MG, QD
     Route: 048
     Dates: start: 2011
  13. LASIX [Concomitant]
     Active Substance: FUROSEMIDE
     Indication: OEDEMA
  14. VALIUM [Concomitant]
     Active Substance: DIAZEPAM
     Indication: ANXIETY
     Dosage: 5 MG, IN 1 AS NECESSARY
     Route: 048
     Dates: start: 2010

REACTIONS (26)
  - Oral mucosal blistering [Recovered/Resolved]
  - Pruritus [Not Recovered/Not Resolved]
  - Ear pruritus [Not Recovered/Not Resolved]
  - Rash pruritic [Recovered/Resolved]
  - Glossodynia [Recovered/Resolved]
  - Blister [Recovered/Resolved]
  - Blood bilirubin increased [Unknown]
  - Burning sensation [Recovering/Resolving]
  - Rash papular [Not Recovered/Not Resolved]
  - Temperature intolerance [Recovering/Resolving]
  - Eye pruritus [Recovered/Resolved]
  - Unevaluable event [Unknown]
  - Paraesthesia [Recovering/Resolving]
  - Decreased appetite [Unknown]
  - Neuropathy peripheral [Recovered/Resolved]
  - Lip swelling [Recovered/Resolved]
  - Blood potassium decreased [Unknown]
  - Burning sensation [Recovering/Resolving]
  - Tongue discolouration [Recovered/Resolved]
  - Plicated tongue [Recovered/Resolved]
  - Joint swelling [Recovering/Resolving]
  - Rash papular [Recovered/Resolved]
  - Oral pain [Recovered/Resolved]
  - Chapped lips [Recovered/Resolved]
  - Headache [Unknown]
  - Off label use [Unknown]

NARRATIVE: CASE EVENT DATE: 201405
